FAERS Safety Report 10395574 (Version 1)
Quarter: 2014Q1

REPORT INFORMATION
  Report Type: Spontaneous
  Country: US (occurrence: None)
  Receive Date: 20130226
  Receipt Date: 20130226
  Transmission Date: 20141002
  Serious: Yes (Other)
  Sender: FDA-Public Use
  Company Number: PHEH2011US011522

PATIENT
  Age: 20 Year
  Sex: Female
  Weight: 56.5 kg

DRUGS (24)
  1. TOBI (TOBRAMYCIN) UNKNOWN [Suspect]
     Indication: CYSTIC FIBROSIS
     Dosage: Q OTHER 28 D,
     Route: 055
  2. ALBUTEROL (SALBUTAMOL) [Concomitant]
  3. HYPERSAL [Concomitant]
  4. PULMOZYME (DORNASE ALFA) [Concomitant]
  5. ZENPEP [Concomitant]
  6. ZANTAC (RANITIDINE HYDROCHLORIDE) [Concomitant]
  7. ZITHROMAX (AZITHROMYCIN) [Concomitant]
  8. VITAMIN A WNITAMIN DNITAMIN ENITAMIN K/ (RETINOL, TOCOPHEROL, VITAMIN D NOS, VITAMIN K NOS) [Concomitant]
  9. INSULIN (INSULIN) [Concomitant]
  10. CAYSTON [Concomitant]
  11. ALB UD [Concomitant]
  12. HTS [Concomitant]
  13. LANTIS [Concomitant]
  14. NASONEX (MOMETASONE FUROATE) [Concomitant]
  15. CLARITIN (LORATADINE) [Concomitant]
  16. ZN PEP [Concomitant]
  17. AQUADEK [Concomitant]
  18. PRILOSEC (OMEPRAZOLE) [Concomitant]
  19. VITAMIN D (ERGOCALCIFEROL) [Concomitant]
  20. LACTULOSE (LACTULOSE) [Concomitant]
  21. ANTIHYPERTENSIVES (NO INGREDIENTS/SUBSTANCES) [Concomitant]
  22. ANALGESICS (NO INGREDIENTS/SUBSTANCES) [Concomitant]
  23. PSYCHOTROPIC [Concomitant]
  24. IBUPROFEN (IBUPROFEN) [Concomitant]

REACTIONS (18)
  - Cystic fibrosis [None]
  - Arthralgia [None]
  - Pyrexia [None]
  - Chest discomfort [None]
  - Head discomfort [None]
  - Throat irritation [None]
  - Cough [None]
  - Insomnia [None]
  - Pain [None]
  - Fatigue [None]
  - Dyspnoea [None]
  - Decreased appetite [None]
  - Abdominal pain [None]
  - Wheezing [None]
  - Rhinorrhoea [None]
  - Muscle spasms [None]
  - Dysphonia [None]
  - Pulmonary toxicity [None]
